FAERS Safety Report 25111360 (Version 1)
Quarter: 2025Q1

REPORT INFORMATION
  Report Type: Report from Study
  Country: US (occurrence: US)
  Receive Date: 20250324
  Receipt Date: 20250324
  Transmission Date: 20250409
  Serious: No
  Sender: Unknown Manufacturer
  Company Number: US-MIRUM PHARMACEUTICALS, INC.-US-MIR-25-00144

PATIENT

DRUGS (2)
  1. MARALIXIBAT [Suspect]
     Active Substance: MARALIXIBAT
     Indication: Progressive familial intrahepatic cholestasis
     Route: 048
  2. MARALIXIBAT [Suspect]
     Active Substance: MARALIXIBAT
     Route: 048

REACTIONS (1)
  - Hepatic enzyme increased [Recovered/Resolved]
